FAERS Safety Report 5066351-5 (Version None)
Quarter: 2006Q3

REPORT INFORMATION
  Report Type: 
  Country: None (occurrence: None)
  Receive Date: 20060801
  Receipt Date: 20060726
  Transmission Date: 20061208
  Serious: Yes (Other)
  Sender: FDA-Public Use
  Company Number: PHNU2006DE02643

PATIENT
  Sex: Male

DRUGS (1)
  1. IMMUNOSPORIN [Suspect]

REACTIONS (1)
  - HYDROCELE [None]
